FAERS Safety Report 17798625 (Version 1)
Quarter: 2020Q2

REPORT INFORMATION
  Report Type: Report from Study
  Country: US (occurrence: US)
  Receive Date: 20200518
  Receipt Date: 20200518
  Transmission Date: 20200714
  Serious: Yes (Other)
  Sender: FDA-Public Use
  Company Number: US-EMD SERONO-9158666

PATIENT
  Sex: Male

DRUGS (2)
  1. MAVENCLAD [Suspect]
     Active Substance: CLADRIBINE
     Indication: MULTIPLE SCLEROSIS
     Dosage: TEAR ONE MONTH ONE THERAPY.
     Route: 048
     Dates: start: 20200325
  2. MAVENCLAD [Suspect]
     Active Substance: CLADRIBINE
     Dosage: YEAR ONE MONTH TWO THERAPY
     Route: 048

REACTIONS (7)
  - Lethargy [Unknown]
  - Loss of consciousness [Recovered/Resolved]
  - Hypoaesthesia [Unknown]
  - Nasal injury [Unknown]
  - Limb discomfort [Unknown]
  - Hyperventilation [Unknown]
  - Multiple sclerosis relapse [Unknown]
